FAERS Safety Report 9425358 (Version 1)
Quarter: 2013Q3

REPORT INFORMATION
  Report Type: Spontaneous
  Country: GB (occurrence: None)
  Receive Date: 20130724
  Receipt Date: 20130724
  Transmission Date: 20140515
  Serious: Yes (Life-Threatening)
  Sender: FDA-Public Use
  Company Number: SP06839

PATIENT
  Sex: 0

DRUGS (2)
  1. MOVIPREP [Suspect]
     Indication: LAXATIVE SUPPORTIVE CARE
  2. MOVIPREP [Suspect]
     Indication: COLONOSCOPY

REACTIONS (1)
  - Cardiac arrest [None]
